FAERS Safety Report 8159597-0 (Version None)
Quarter: 2012Q1

REPORT INFORMATION
  Report Type: 
  Country: None (occurrence: None)
  Receive Date: 20120223
  Receipt Date: 20120217
  Transmission Date: 20120608
  Serious: Yes (Other)
  Sender: FDA-Public Use
  Company Number: MY-ROCHE-1041355

PATIENT
  Age: 17 Year
  Sex: Female

DRUGS (3)
  1. ROXITHROMYCIN [Concomitant]
  2. ACYCLOVIR [Concomitant]
  3. ISOTRETINOIN [Suspect]
     Indication: PRODUCT USED FOR UNKNOWN INDICATION
     Route: 048

REACTIONS (1)
  - ACUTE GENERALISED EXANTHEMATOUS PUSTULOSIS [None]
